FAERS Safety Report 7484787-X (Version None)
Quarter: 2011Q2

REPORT INFORMATION
  Report Type: 
  Country: None (occurrence: None)
  Receive Date: 20110517
  Receipt Date: 20110504
  Transmission Date: 20111010
  Serious: Yes (Hospitalization)
  Sender: FDA-Public Use
  Company Number: CA-AMGEN-CANSP2011013921

PATIENT
  Age: 48 Year
  Sex: Male
  Weight: 102.95 kg

DRUGS (11)
  1. PREDNISONE TAB [Suspect]
     Dosage: 2.5 MG, QD
     Route: 048
     Dates: start: 20050101
  2. ENBREL [Suspect]
     Indication: RHEUMATOID ARTHRITIS
     Dosage: 50 MG, QWK
     Dates: start: 20090211
  3. CALCIUM [Concomitant]
     Dosage: 500 MG, BID
     Route: 048
     Dates: start: 20070101
  4. ENBREL [Suspect]
     Dosage: 25 MG, QWK
     Route: 030
     Dates: start: 20090101
  5. LEFLUNOMIDE [Concomitant]
     Dosage: 20 MG, QD
     Route: 048
     Dates: start: 20050101
  6. VITAMIN D [Concomitant]
     Dosage: 400 IU, BID
     Route: 048
     Dates: start: 20070101
  7. ALTACE [Concomitant]
     Dosage: 2.5 MG, QD
     Route: 048
     Dates: start: 20080101
  8. FOSAMAX [Concomitant]
     Dosage: 70 MG, QWK
     Route: 048
     Dates: start: 20070101
  9. EMTEC-30 [Concomitant]
     Dosage: 30 MG, UNK
     Route: 048
  10. WELLBUTRIN XL [Concomitant]
     Dosage: 150 MG, UNK
     Route: 048
     Dates: start: 20100101
  11. MOBICOX [Concomitant]
     Dosage: 15 MG, UNK
     Route: 048
     Dates: start: 20050101

REACTIONS (4)
  - POST PROCEDURAL INFECTION [None]
  - INFECTION [None]
  - FEMUR FRACTURE [None]
  - PATHOLOGICAL FRACTURE [None]
